FAERS Safety Report 5207384-5 (Version None)
Quarter: 2006Q4

REPORT INFORMATION
  Report Type: 
  Country: None (occurrence: None)
  Receive Date: 20061027
  Receipt Date: 20060116
  Transmission Date: 20070319
  Serious: Yes (Other)
  Sender: FDA-Public Use
  Company Number: HQWYE386817JAN06

PATIENT
  Age: 64 Year
  Sex: Female

DRUGS (1)
  1. PREMARIN [Suspect]
     Indication: HORMONE REPLACEMENT THERAPY
     Dosage: 0.625 MG INTERMITTENT WITH DOSE DECREASES

REACTIONS (2)
  - BREAST CANCER [None]
  - NONSPECIFIC REACTION [None]
